FAERS Safety Report 6045638-3 (Version None)
Quarter: 2009Q1

REPORT INFORMATION
  Report Type: 
  Country: None (occurrence: None)
  Receive Date: 20090121
  Receipt Date: 20090116
  Transmission Date: 20090719
  Serious: Yes (Death)
  Sender: FDA-Public Use
  Company Number: GB-TEVA-184028ISR

PATIENT
  Sex: Female

DRUGS (2)
  1. METFORMIN [Suspect]
     Route: 048
  2. AMISULPRIDE [Suspect]
     Route: 048

REACTIONS (2)
  - DEATH [None]
  - DRUG TOXICITY [None]
